FAERS Safety Report 4439008-9 (Version None)
Quarter: 2004Q3

REPORT INFORMATION
  Report Type: 
  Country: None (occurrence: None)
  Receive Date: 20040901
  Receipt Date: 20040818
  Transmission Date: 20050211
  Serious: Yes (Other)
  Sender: FDA-Public Use
  Company Number: GB-MERCK-0408GBR00174

PATIENT
  Age: 67 Year
  Sex: Female
  Weight: 76 kg

DRUGS (8)
  1. ACETAMINOPHEN [Concomitant]
     Route: 065
  2. ASPIRIN [Concomitant]
     Indication: DIABETES MELLITUS
     Route: 065
  3. DIGITOXIN [Concomitant]
     Route: 065
  4. ZETIA [Suspect]
     Indication: BLOOD CHOLESTEROL INCREASED
     Route: 048
     Dates: start: 20030712
  5. GLIPIZIDE [Concomitant]
     Indication: DIABETES MELLITUS
     Route: 065
  6. HYDROCHLOROTHIAZIDE AND TRIAMTERENE [Concomitant]
     Indication: HYPERTENSION
     Route: 065
  7. NITROGLYCERIN [Concomitant]
     Indication: PAIN
     Route: 060
  8. SOTALOL HYDROCHLORIDE [Concomitant]
     Indication: TACHYCARDIA
     Route: 065

REACTIONS (1)
  - PHOTOSENSITIVE RASH [None]
